FAERS Safety Report 11152513 (Version 1)
Quarter: 2015Q2

REPORT INFORMATION
  Report Type: Spontaneous
  Country: AT (occurrence: AT)
  Receive Date: 20150601
  Receipt Date: 20150601
  Transmission Date: 20150821
  Serious: Yes (Hospitalization, Other)
  Sender: FDA-Public Use
  Company Number: AT-ACTAVIS-2015-10561

PATIENT
  Age: 34 Year
  Sex: Male

DRUGS (1)
  1. BETAMETHASONE DIPROPIONATE (AMALLC) [Suspect]
     Active Substance: BETAMETHASONE DIPROPIONATE
     Indication: DERMATITIS ATOPIC
     Dosage: 150 G PER WEEK, APPLIED DAILY DURING EXACERBATIONS
     Route: 003

REACTIONS (4)
  - Secondary adrenocortical insufficiency [Recovered/Resolved]
  - Cushing^s syndrome [Recovered/Resolved]
  - Overdose [Recovered/Resolved]
  - Incorrect drug administration duration [Recovered/Resolved]
